FAERS Safety Report 20088493 (Version 1)
Quarter: 2021Q4

REPORT INFORMATION
  Report Type: Spontaneous
  Country: GB (occurrence: GB)
  Receive Date: 20211119
  Receipt Date: 20211119
  Transmission Date: 20220303
  Serious: Yes (Other)
  Sender: FDA-Public Use
  Company Number: GB-MHRA-EMIS-4662-77be722f-d671-447c-ac32-f5ccb0d33534

PATIENT
  Age: 41 Year
  Sex: Female
  Weight: 70 kg

DRUGS (10)
  1. NAPROXEN [Suspect]
     Active Substance: NAPROXEN
     Indication: Product used for unknown indication
     Dosage: 2 DOSAGE FORM, ONCE A DAY(WITH FOOD)
     Route: 065
     Dates: start: 20211028
  2. ASPIRIN [Concomitant]
     Active Substance: ASPIRIN
     Indication: Product used for unknown indication
     Dosage: 300 MILLIGRAM, ONCE A DAY
     Route: 065
     Dates: start: 20210813
  3. ATORVASTATIN [Concomitant]
     Active Substance: ATORVASTATIN
     Indication: Product used for unknown indication
     Dosage: 80 MILLIGRAM, ONCE A DAY
     Route: 065
     Dates: start: 20210813
  4. CLOPIDOGREL [Concomitant]
     Active Substance: CLOPIDOGREL BISULFATE
     Indication: Product used for unknown indication
     Dosage: 75 MILLIGRAM, ONCE A DAY
     Route: 065
     Dates: start: 20210817
  5. DESOGESTREL [Concomitant]
     Active Substance: DESOGESTREL
     Indication: Cerebrovascular accident
     Dosage: AT THE SAME TIME EACH DAY
     Route: 065
     Dates: start: 20210921
  6. MIRTAZAPINE [Concomitant]
     Active Substance: MIRTAZAPINE
     Indication: Product used for unknown indication
     Dosage: 15 MG. 1 EACH NIGHT, INCREASE TO 2 TABLETS IF SIGNIFICANT IMPROVEMENT AND WELL TOLERATED IN 1 WEEK
     Route: 065
     Dates: start: 20210921
  7. OMEPRAZOLE [Concomitant]
     Active Substance: OMEPRAZOLE
     Indication: Product used for unknown indication
     Dosage: 20 MILLIGRAM, ONCE A DAY
     Route: 065
     Dates: start: 20211028
  8. SERTRALINE [Concomitant]
     Active Substance: SERTRALINE HYDROCHLORIDE
     Indication: Product used for unknown indication
     Dosage: 50 MILLIGRAM, ONCE A DAY
     Route: 065
     Dates: start: 20210825
  9. TARMED [Concomitant]
     Indication: Product used for unknown indication
     Dosage: 150 MILLILITER(AS DIRECTED)
     Route: 065
     Dates: start: 20210825
  10. TRANEXAMIC ACID [Concomitant]
     Active Substance: TRANEXAMIC ACID
     Indication: Product used for unknown indication
     Dosage: 1 GRAM, 3 TIMES A DAY(WHEN MENSTRUATING)
     Route: 065
     Dates: start: 20210818

REACTIONS (1)
  - Contusion [Recovered/Resolved]
